FAERS Safety Report 26112427 (Version 1)
Quarter: 2025Q4

REPORT INFORMATION
  Report Type: Spontaneous
  Country: EU (occurrence: EU)
  Receive Date: 20251202
  Receipt Date: 20251202
  Transmission Date: 20260118
  Serious: Yes (Hospitalization)
  Sender: ASTELLAS
  Company Number: EU-ASTELLAS-2025-AER-066014

PATIENT
  Age: 57 Year
  Sex: Male

DRUGS (3)
  1. PADCEV [Suspect]
     Active Substance: ENFORTUMAB VEDOTIN-EJFV
     Indication: Bladder cancer
     Dosage: 2ND DOSE OF ENFORTUMAB VEDOTIN (DAY 8 IN CYCLE)
     Route: 050
     Dates: start: 20251117
  2. PADCEV [Suspect]
     Active Substance: ENFORTUMAB VEDOTIN-EJFV
     Dosage: FIRST DOSE OF ENFORTUMAB VEDOTIN
     Route: 050
     Dates: start: 202511
  3. PEMBROLIZUMAB [Concomitant]
     Active Substance: PEMBROLIZUMAB
     Indication: Bladder cancer
     Dosage: (1ST LINE)
     Route: 065
     Dates: start: 202511

REACTIONS (5)
  - Burning sensation [Unknown]
  - Blister [Unknown]
  - Eye abscess [Unknown]
  - Genital abscess [Unknown]
  - Toxic epidermal necrolysis [Unknown]

NARRATIVE: CASE EVENT DATE: 20251123
